FAERS Safety Report 21936694 (Version 2)
Quarter: 2023Q1

REPORT INFORMATION
  Report Type: Spontaneous
  Country: US (occurrence: US)
  Receive Date: 20230201
  Receipt Date: 20230317
  Transmission Date: 20230417
  Serious: Yes (Hospitalization)
  Sender: FDA-Public Use
  Company Number: US-MARINUS PHARMACEUTICALS, INC.-MAR2023000005

PATIENT

DRUGS (2)
  1. ZTALMY [Suspect]
     Active Substance: GANAXOLONE
     Indication: CDKL5 deficiency disorder
     Dosage: 300 MILLIGRAM, TID
     Route: 048
     Dates: start: 20221223
  2. ZTALMY [Suspect]
     Active Substance: GANAXOLONE
     Indication: Epilepsy

REACTIONS (3)
  - Hypertransaminasaemia [Unknown]
  - Influenza [Unknown]
  - Somnolence [Unknown]

NARRATIVE: CASE EVENT DATE: 20230101
